FAERS Safety Report 18511129 (Version 2)
Quarter: 2021Q1

REPORT INFORMATION
  Report Type: Spontaneous
  Country: JP (occurrence: JP)
  Receive Date: 20201117
  Receipt Date: 20210223
  Transmission Date: 20210419
  Serious: Yes (Hospitalization, Other)
  Sender: FDA-Public Use
  Company Number: JP-CHEPLA-C20203321

PATIENT
  Age: 84 Year
  Sex: Male
  Weight: 43 kg

DRUGS (9)
  1. DENOSINE [GANCICLOVIR] [Suspect]
     Active Substance: GANCICLOVIR
     Route: 041
     Dates: start: 20201030, end: 20201109
  2. URALYT [Concomitant]
  3. ROSUVASTATIN. [Concomitant]
     Active Substance: ROSUVASTATIN
  4. MIYA?BM [Concomitant]
     Active Substance: CLOSTRIDIUM BUTYRICUM SPORES STRAIN M-55
  5. AMBROXOL HYDROCHLORIDE OD [Concomitant]
  6. SHOSEIRYUTO [Concomitant]
     Active Substance: EPHEDRA SINICA STEM\HERBALS
  7. ALPROSTADIL. [Concomitant]
     Active Substance: ALPROSTADIL
     Dates: start: 20201028, end: 20201106
  8. FEBURIC [Concomitant]
     Active Substance: FEBUXOSTAT
  9. PENTASA [Concomitant]
     Active Substance: MESALAMINE
     Dates: start: 20201026

REACTIONS (5)
  - Blood alkaline phosphatase increased [Unknown]
  - Drug-induced liver injury [Recovered/Resolved]
  - Aspartate aminotransferase increased [Unknown]
  - Alanine aminotransferase increased [Unknown]
  - Pancytopenia [Unknown]

NARRATIVE: CASE EVENT DATE: 20201102
